FAERS Safety Report 6526997-1 (Version None)
Quarter: 2010Q1

REPORT INFORMATION
  Report Type: 
  Country: None (occurrence: None)
  Receive Date: 20100105
  Receipt Date: 20091221
  Transmission Date: 20100710
  Serious: Yes (Other)
  Sender: FDA-Public Use
  Company Number: JP-PFIZER INC-2009313749

PATIENT
  Age: 49 Year
  Sex: Male

DRUGS (10)
  1. ATARAX [Suspect]
     Dosage: 25 MG, DAILY
     Route: 048
     Dates: start: 20091003
  2. PAXIL [Suspect]
     Indication: DEPRESSION
     Dosage: 20 MG, 1X/DAY
     Route: 048
     Dates: start: 20091110
  3. LENDORMIN [Suspect]
     Route: 048
  4. ROHYPNOL [Suspect]
     Dosage: 15 MG, DAILY
     Dates: start: 20091003
  5. DALMANE [Suspect]
     Dosage: 15 MG DAILY
     Route: 048
     Dates: start: 20091003
  6. MUCOSTA [Suspect]
     Route: 048
  7. AMARYL [Suspect]
     Route: 048
  8. URSODEOXYCHOLIC ACID [Suspect]
     Route: 048
  9. LEVOMEPROMAZINE MALEATE [Concomitant]
  10. BROTIZOLAM [Concomitant]

REACTIONS (5)
  - ACTIVATION SYNDROME [None]
  - AGGRESSION [None]
  - HOSTILITY [None]
  - IRRITABILITY [None]
  - PHYSICAL ASSAULT [None]
